FAERS Safety Report 16660626 (Version 1)
Quarter: 2019Q3

REPORT INFORMATION
  Report Type: Spontaneous
  Country: CH (occurrence: CH)
  Receive Date: 20190802
  Receipt Date: 20190802
  Transmission Date: 20191004
  Serious: Yes (Life-Threatening, Hospitalization)
  Sender: FDA-Public Use
  Company Number: CH-BAXTER-2019BAX014732

PATIENT
  Age: 65 Year
  Sex: Female
  Weight: 54 kg

DRUGS (19)
  1. UROMITEXAN 400 ML, L?SUNG ZUR INTRAVEN?SEN ANWENDUNG [Suspect]
     Active Substance: MESNA
     Indication: PRODUCT USED FOR UNKNOWN INDICATION
     Dosage: DAY 2 OF (THIRD CYCLE) R-ICE CHEMOTHERAPY
     Route: 065
     Dates: start: 20190712, end: 20190712
  2. RIXATHON [Suspect]
     Active Substance: RITUXIMAB
     Dosage: SECOND CYCLE OF R-ICE CHEMOTHERAPY
     Route: 041
     Dates: start: 20190619
  3. ZYLORIC [Concomitant]
     Active Substance: ALLOPURINOL
     Indication: PRODUCT USED FOR UNKNOWN INDICATION
     Route: 065
  4. HOLOXAN 2 G [Suspect]
     Active Substance: IFOSFAMIDE
     Dosage: DAYS 2-3 OF (SECOND CYCLE) R-ICE CHEMOTHERAPY
     Route: 041
     Dates: start: 20190620
  5. HOLOXAN 2 G [Suspect]
     Active Substance: IFOSFAMIDE
     Dosage: DAYS 2-3 OF (THIRD CYCLE) R-ICE CHEMOTHERAPY (75% OF THE DOSE)
     Route: 041
     Dates: start: 20190712, end: 20190713
  6. CARBOPLATINE [Suspect]
     Active Substance: CARBOPLATIN
     Dosage: DAY-2 OF (THIRD CYCLE) R-ICE CHEMOTHERAPY
     Route: 041
     Dates: start: 20190712, end: 20190712
  7. UROMITEXAN 400 ML, L?SUNG ZUR INTRAVEN?SEN ANWENDUNG [Suspect]
     Active Substance: MESNA
     Dosage: DAY 3 (THIRD CYCLE) (75% OF THE DOSE) OF R-ICE CHEMOTHERAPY
     Route: 065
     Dates: start: 20190713, end: 20190713
  8. CARBOPLATINE [Suspect]
     Active Substance: CARBOPLATIN
     Indication: DIFFUSE LARGE B-CELL LYMPHOMA
     Dosage: DAY-2 OF (FIRST CYCLE) R-ICE CHEMOTHERAPY
     Route: 041
     Dates: start: 20190530
  9. CARBOPLATINE [Suspect]
     Active Substance: CARBOPLATIN
     Dosage: DAY-2 OF (SECOND CYCLE) R-ICE CHEMOTHERAPY
     Route: 041
     Dates: start: 20190620
  10. RIXATHON [Suspect]
     Active Substance: RITUXIMAB
     Dosage: DAY-1 OF (THIRD CYCLE) R-ICE CHEMOTHERAPY
     Route: 041
     Dates: start: 20190711, end: 20190711
  11. SOLU-MEDROL [Concomitant]
     Active Substance: METHYLPREDNISOLONE SODIUM SUCCINATE
     Indication: PRODUCT USED FOR UNKNOWN INDICATION
     Route: 065
  12. DAFALGAN [Concomitant]
     Active Substance: ACETAMINOPHEN
     Indication: PRODUCT USED FOR UNKNOWN INDICATION
     Dosage: 1 G = 1 CP
     Route: 048
  13. CALCIMAGON-D3 FORTE [Concomitant]
     Indication: PRODUCT USED FOR UNKNOWN INDICATION
     Dosage: 1000/800
     Route: 048
  14. HOLOXAN 2 G [Suspect]
     Active Substance: IFOSFAMIDE
     Indication: DIFFUSE LARGE B-CELL LYMPHOMA
     Dosage: DAYS 2-3 OF (FIRST CYCLE) R-ICE CHEMOTHERAPY
     Route: 041
     Dates: start: 20190530
  15. ETOPOPHOS [Suspect]
     Active Substance: ETOPOSIDE PHOSPHATE
     Dosage: DAY 1 AND 2 OF (SECOND CYCLE) OF R-ICE CHEMOTHERAPY
     Route: 041
     Dates: start: 20190619
  16. ULTIBRO BREEZHALER [Concomitant]
     Active Substance: GLYCOPYRRONIUM\INDACATEROL
     Indication: PRODUCT USED FOR UNKNOWN INDICATION
     Dosage: 1 CAPS INHAL CAPULE
     Route: 065
  17. ETOPOPHOS [Suspect]
     Active Substance: ETOPOSIDE PHOSPHATE
     Indication: DIFFUSE LARGE B-CELL LYMPHOMA
     Dosage: DAY 1 AND 2 OF (FIRST CYCLE) R-ICE CHEMOTHERAPY
     Route: 041
     Dates: start: 20190529
  18. ETOPOPHOS [Suspect]
     Active Substance: ETOPOSIDE PHOSPHATE
     Dosage: DAY 1 AND 2 OF (THIRD CYCLE) OF R-ICE CHEMOTHERAPY (75% OF THE DOSE)
     Route: 041
     Dates: start: 20190711, end: 20190712
  19. RIXATHON [Suspect]
     Active Substance: RITUXIMAB
     Indication: DIFFUSE LARGE B-CELL LYMPHOMA
     Dosage: FIRST CYCLE OF R-ICE CHEMOTHERAPY
     Route: 041
     Dates: start: 20190529

REACTIONS (2)
  - Anaemia [Unknown]
  - Acute myocardial infarction [Not Recovered/Not Resolved]

NARRATIVE: CASE EVENT DATE: 201907
